FAERS Safety Report 13424800 (Version 1)
Quarter: 2017Q2

REPORT INFORMATION
  Report Type: Report from Study
  Country: US (occurrence: US)
  Receive Date: 20170410
  Receipt Date: 20170410
  Transmission Date: 20170830
  Serious: Yes (Death, Hospitalization)
  Sender: FDA-Public Use
  Company Number: US-ACTELION-A-NJ2016-146768

PATIENT
  Age: 70 Year
  Sex: Male

DRUGS (5)
  1. SYNTHROID [Concomitant]
     Active Substance: LEVOTHYROXINE SODIUM
  2. PREDNISONE. [Concomitant]
     Active Substance: PREDNISONE
  3. ALBUTEROL. [Concomitant]
     Active Substance: ALBUTEROL
  4. OPSUMIT [Suspect]
     Active Substance: MACITENTAN
     Indication: IDIOPATHIC PULMONARY FIBROSIS
     Dosage: 10 MG, QD
     Route: 048
     Dates: start: 20161207
  5. AMLODIPINE [Concomitant]
     Active Substance: AMLODIPINE BESYLATE

REACTIONS (5)
  - Bronchitis [Unknown]
  - Fluid retention [Unknown]
  - Pulmonary oedema [Unknown]
  - Urinary tract infection [Unknown]
  - Death [Fatal]

NARRATIVE: CASE EVENT DATE: 20170316
